FAERS Safety Report 21218704 (Version 6)
Quarter: 2022Q4

REPORT INFORMATION
  Report Type: Report from Study
  Country: US (occurrence: US)
  Receive Date: 20220816
  Receipt Date: 20221028
  Transmission Date: 20230113
  Serious: Yes (Other)
  Sender: FDA-Public Use
  Company Number: US-PFIZER INC-PV202200043676

PATIENT
  Age: 68 Year
  Sex: Female

DRUGS (1)
  1. IBRANCE [Suspect]
     Active Substance: PALBOCICLIB
     Dosage: 125 MG
     Dates: start: 20220727

REACTIONS (28)
  - Neuropathy peripheral [Unknown]
  - Asthenia [Unknown]
  - Insomnia [Unknown]
  - Restless legs syndrome [Unknown]
  - Diarrhoea [Unknown]
  - Constipation [Unknown]
  - Nausea [Recovered/Resolved]
  - Headache [Unknown]
  - Flatulence [Unknown]
  - Increased appetite [Unknown]
  - Dyspnoea [Unknown]
  - Peripheral coldness [Unknown]
  - Hot flush [Unknown]
  - Chills [Unknown]
  - Vertigo [Unknown]
  - Full blood count abnormal [Unknown]
  - Pyrexia [Unknown]
  - White blood cell count decreased [Unknown]
  - Limb discomfort [Unknown]
  - Pain in extremity [Unknown]
  - Feeling cold [Unknown]
  - Pain in extremity [Unknown]
  - Balance disorder [Unknown]
  - Nervousness [Unknown]
  - Myalgia [Unknown]
  - Decreased appetite [Unknown]
  - Depression [Unknown]
  - Hair texture abnormal [Unknown]

NARRATIVE: CASE EVENT DATE: 20220101
